FAERS Safety Report 11368521 (Version 1)
Quarter: 2015Q3

REPORT INFORMATION
  Report Type: Spontaneous
  Country: US (occurrence: US)
  Receive Date: 20150812
  Receipt Date: 20150812
  Transmission Date: 20151125
  Serious: Yes (Other)
  Sender: FDA-Public Use
  Company Number: US-AMGEN-USASP2015080748

PATIENT
  Age: 64 Year
  Sex: Female
  Weight: 83.9 kg

DRUGS (9)
  1. LANSOPRAZOLE. [Concomitant]
     Active Substance: LANSOPRAZOLE
     Dosage: UNK
  2. ENBREL [Suspect]
     Active Substance: ETANERCEPT
     Dosage: 50 MG, Q2WK
     Route: 058
  3. VITAMIN D                          /00107901/ [Concomitant]
     Active Substance: ERGOCALCIFEROL
     Dosage: UNK
  4. ENBREL [Suspect]
     Active Substance: ETANERCEPT
     Indication: RHEUMATOID ARTHRITIS
     Dosage: 50 MG, QWK
     Route: 058
     Dates: start: 2010
  5. DILTIAZEM [Concomitant]
     Active Substance: DILTIAZEM
     Dosage: UNK
  6. HYDROXYUREA. [Suspect]
     Active Substance: HYDROXYUREA
     Indication: PLATELET DISORDER
     Dosage: UNK
     Route: 065
  7. FOLIC ACID. [Concomitant]
     Active Substance: FOLIC ACID
     Dosage: UNK
  8. WARFARIN [Concomitant]
     Active Substance: WARFARIN
     Dosage: UNK
  9. PROPRANOLOL [Concomitant]
     Active Substance: PROPRANOLOL\PROPRANOLOL HYDROCHLORIDE
     Dosage: UNK

REACTIONS (3)
  - Immunosuppressant drug therapy [Unknown]
  - Red blood cell count decreased [Unknown]
  - White blood cell count decreased [Recovered/Resolved]
